FAERS Safety Report 9712007 (Version 1)
Quarter: 2013Q4

REPORT INFORMATION
  Report Type: Spontaneous
  Country: US (occurrence: None)
  Receive Date: 20131122
  Receipt Date: 20131122
  Transmission Date: 20140711
  Serious: Yes (Other)
  Sender: FDA-Public Use
  Company Number: ADR-2013-02121

PATIENT
  Age: 75 Year
  Sex: Male

DRUGS (3)
  1. BACLOFEN INTRATHECAL [Suspect]
  2. DILAUDID [Suspect]
     Indication: PAIN
  3. LEVEMER [Concomitant]

REACTIONS (9)
  - Drug ineffective [None]
  - Hyperaesthesia [None]
  - Dyspnoea [None]
  - Back pain [None]
  - Arthralgia [None]
  - Asthenia [None]
  - Hypoaesthesia [None]
  - Sleep disorder [None]
  - Drug level increased [None]
